FAERS Safety Report 13795331 (Version 1)
Quarter: 2017Q3

REPORT INFORMATION
  Report Type: Report from Study
  Country: US (occurrence: US)
  Receive Date: 20170726
  Receipt Date: 20170726
  Transmission Date: 20171127
  Serious: Yes (Life-Threatening, Hospitalization)
  Sender: FDA-Public Use
  Company Number: US-IPSEN BIOPHARMACEUTICALS, INC.-2017-02841

PATIENT
  Age: 55 Year
  Sex: Female
  Weight: 67.13 kg

DRUGS (8)
  1. MARINOL [Concomitant]
     Active Substance: DRONABINOL
  2. METHIMAZOLE. [Concomitant]
     Active Substance: METHIMAZOLE
  3. TEMAZEPAM. [Concomitant]
     Active Substance: TEMAZEPAM
  4. LOSARTAN. [Concomitant]
     Active Substance: LOSARTAN
  5. SOMATULINE DEPOT [Suspect]
     Active Substance: LANREOTIDE ACETATE
     Dosage: NOT REPORTED
     Route: 065
     Dates: start: 20161115
  6. CORTEF [Concomitant]
     Active Substance: HYDROCORTISONE
  7. SOMATULINE DEPOT [Suspect]
     Active Substance: LANREOTIDE ACETATE
     Indication: ACROMEGALY
     Dosage: 90 MG
     Route: 058
     Dates: end: 201610
  8. MAXZIDE [Concomitant]
     Active Substance: HYDROCHLOROTHIAZIDE\TRIAMTERENE

REACTIONS (1)
  - Colon cancer [Not Recovered/Not Resolved]

NARRATIVE: CASE EVENT DATE: 20160531
